FAERS Safety Report 20408927 (Version 2)
Quarter: 2022Q1

REPORT INFORMATION
  Report Type: Spontaneous
  Country: US (occurrence: US)
  Receive Date: 20220201
  Receipt Date: 20220215
  Transmission Date: 20220424
  Serious: Yes (Other)
  Sender: FDA-Public Use
  Company Number: US-CIPLA LTD.-2022US00429

PATIENT

DRUGS (2)
  1. GEMCITABINE [Suspect]
     Active Substance: GEMCITABINE
     Indication: Leiomyosarcoma
     Dosage: UNK, 5 CYCLES
     Route: 065
  2. DOCETAXEL [Concomitant]
     Active Substance: DOCETAXEL
     Indication: Leiomyosarcoma
     Dosage: UNK, 5 CYCLES
     Route: 065

REACTIONS (2)
  - Purtscher retinopathy [Recovering/Resolving]
  - Retinal ischaemia [Recovered/Resolved]
